FAERS Safety Report 15985363 (Version 1)
Quarter: 2019Q1

REPORT INFORMATION
  Report Type: Spontaneous
  Country: US (occurrence: US)
  Receive Date: 20190220
  Receipt Date: 20190220
  Transmission Date: 20190418
  Serious: No
  Sender: FDA-Public Use
  Company Number: PHEH2019US006628

PATIENT
  Age: 12 Year
  Sex: Male
  Weight: 36 kg

DRUGS (4)
  1. LETROZOLE. [Suspect]
     Active Substance: LETROZOLE
     Indication: PRODUCT USED FOR UNKNOWN INDICATION
     Dosage: 1 DF, QD
     Route: 065
  2. LEVOTHYROXINE SODIUM. [Concomitant]
     Active Substance: LEVOTHYROXINE SODIUM
     Indication: PRODUCT USED FOR UNKNOWN INDICATION
     Dosage: 1 DF, QD
     Route: 048
  3. GENOTROPIN [Suspect]
     Active Substance: SOMATROPIN
     Indication: PRODUCT USED FOR UNKNOWN INDICATION
     Dosage: 1.8 MG, QD (6 DAYS PER WEEK)
     Route: 065
  4. MULTI VITAMIN [Concomitant]
     Active Substance: VITAMINS
     Indication: PRODUCT USED FOR UNKNOWN INDICATION
     Dosage: 1 DF, QD
     Route: 048

REACTIONS (19)
  - Hyperprolactinaemia [Unknown]
  - Precocious puberty [Unknown]
  - Snoring [Unknown]
  - Mean cell volume increased [Unknown]
  - Eosinophil count decreased [Unknown]
  - Haemoglobin increased [Unknown]
  - Arthralgia [Unknown]
  - Red blood cell count increased [Unknown]
  - Basophil count increased [Unknown]
  - Blood albumin increased [Unknown]
  - Blood potassium decreased [Unknown]
  - Haematocrit increased [Unknown]
  - Neutrophil count decreased [Unknown]
  - Headache [Unknown]
  - Blood urea increased [Unknown]
  - Blood chloride decreased [Unknown]
  - Blood thyroid stimulating hormone increased [Unknown]
  - Blood glucose increased [Unknown]
  - Lymphocyte count increased [Unknown]

NARRATIVE: CASE EVENT DATE: 20170728
